FAERS Safety Report 12134315 (Version 3)
Quarter: 2016Q2

REPORT INFORMATION
  Report Type: Spontaneous
  Country: JP (occurrence: JP)
  Receive Date: 20160301
  Receipt Date: 20160401
  Transmission Date: 20160815
  Serious: Yes (Hospitalization, Other)
  Sender: FDA-Public Use
  Company Number: JP-GLAXOSMITHKLINE-JP2016JPN026218

PATIENT
  Age: 10 Year
  Sex: Male
  Weight: 29 kg

DRUGS (4)
  1. MEDICON (DEXTROMETHORPHAN HYDROBROMIDE HYDRATE) [Concomitant]
     Dosage: UNK
  2. CALONAL [Concomitant]
     Active Substance: ACETAMINOPHEN
     Dosage: UNK
  3. CARBOCISTEINE [Concomitant]
     Active Substance: CARBOCYSTEINE
     Dosage: UNK
  4. RELENZA [Suspect]
     Active Substance: ZANAMIVIR
     Indication: INFLUENZA
     Dosage: 10 MG, BID
     Route: 055
     Dates: start: 20160222

REACTIONS (3)
  - Limb injury [Recovered/Resolved]
  - Abnormal behaviour [Recovered/Resolved]
  - Delirium febrile [Recovered/Resolved]

NARRATIVE: CASE EVENT DATE: 20160222
